FAERS Safety Report 7122598-5 (Version None)
Quarter: 2010Q4

REPORT INFORMATION
  Report Type: 
  Country: None (occurrence: None)
  Receive Date: 20101124
  Receipt Date: 20101115
  Transmission Date: 20110411
  Serious: Yes (Other)
  Sender: FDA-Public Use
  Company Number: KR-WATSON-2010-15053

PATIENT
  Age: 44 Year
  Sex: Female

DRUGS (1)
  1. LIDOCAINE HYDROCHLORIDE [Suspect]
     Indication: LOCAL ANAESTHESIA
     Dosage: 3 ML SINGLE INJECTION
     Route: 047

REACTIONS (4)
  - PAPILLOEDEMA [None]
  - RETINAL DEPIGMENTATION [None]
  - RETINAL HAEMORRHAGE [None]
  - RETINOPATHY [None]
